FAERS Safety Report 11359622 (Version 1)
Quarter: 2015Q3

REPORT INFORMATION
  Report Type: Spontaneous
  Country: US (occurrence: None)
  Receive Date: 20150807
  Receipt Date: 20150807
  Transmission Date: 20151125
  Serious: No
  Sender: FDA-Public Use
  Company Number: None

PATIENT
  Age: 48 Year
  Sex: Male
  Weight: 111 kg

DRUGS (2)
  1. DAUNORUBICIN [Suspect]
     Active Substance: DAUNORUBICIN
     Dates: end: 20150526
  2. CYTARABINE. [Suspect]
     Active Substance: CYTARABINE
     Dates: end: 20150522

REACTIONS (3)
  - Haemolysis [None]
  - Blood lactate dehydrogenase increased [None]
  - Blood bilirubin increased [None]

NARRATIVE: CASE EVENT DATE: 20150519
